FAERS Safety Report 9286811 (Version 1)
Quarter: 2012Q4

REPORT INFORMATION
  Report Type: Spontaneous
  Country: US (occurrence: None)
  Receive Date: 20120920
  Receipt Date: 20120920
  Transmission Date: 20130627
  Serious: Yes (Hospitalization)
  Sender: FDA-Public Use
  Company Number: 2011SGN00297

PATIENT
  Age: 81 Year
  Sex: Male
  Weight: 88.2 kg

DRUGS (20)
  1. BRENTUXIMAB VEDOTIN [Suspect]
     Indication: ANAPLASTIC LARGE-CELL LYMPHOMA, PRIMARY SYSTEMIC TYPE
     Route: 042
     Dates: start: 20110808, end: 20111010
  2. CYCLOPHOSPHAMIDE [Suspect]
     Indication: ANAPLASTIC LARGE-CELL LYMPHOMA, PRIMARY SYSTEMIC TYPE
     Route: 042
     Dates: start: 20110808, end: 20111010
  3. DOXORUBICIN [Suspect]
     Indication: ANAPLASTIC LARGE-CELL LYMPHOMA, PRIMARY SYSTEMIC TYPE
     Route: 042
     Dates: start: 20110808, end: 20111010
  4. PREDNISONE [Suspect]
     Indication: ANAPLASTIC LARGE-CELL LYMPHOMA, PRIMARY SYSTEMIC TYPE
     Dates: start: 20110808, end: 20111010
  5. MAGNESIUM (IMAGNESIUM) [Concomitant]
  6. VITAMIN D (IVITAMIN D) [Concomitant]
  7. LISINOPRIL (LISINOPRIL DIHYDRATE) (UNKNOWN [Concomitant]
  8. ALLOPURINOL (ALLOPURINOL) [Concomitant]
  9. LOVASTATIN (LOVASTATIN) [Concomitant]
  10. CILOSTAZOL (CILOSTAZOL) [Concomitant]
  11. PANTOPRAZOLE (PANTOPRAZOLE) [Concomitant]
  12. DOCUSATE (DOCUSATE) [Concomitant]
  13. SENNA (SENNA) [Concomitant]
  14. FUROSEMIDE (FUROSEMIDE SODIUM) [Concomitant]
  15. ONDANSETRON (ONDANSETRON) [Concomitant]
  16. ASA (ASA) [Concomitant]
  17. PROCHLORPERAZINE (PROCHLORPERAZINE MALEATE) [Concomitant]
  18. NUELASTA (PEGFILGRASTIM) [Concomitant]
  19. KLOR-CON (POTASSIUM CHLORIDE) [Concomitant]
  20. VITAMIN B12 (HYDRIOXOCOBALAMIN) [Concomitant]

REACTIONS (4)
  - Syncope [None]
  - Febrile neutropenia [None]
  - Sciatica [None]
  - Loss of consciousness [None]
